FAERS Safety Report 15839780 (Version 5)
Quarter: 2020Q4

REPORT INFORMATION
  Report Type: Spontaneous
  Country: DE (occurrence: DE)
  Receive Date: 20190117
  Receipt Date: 20201228
  Transmission Date: 20210113
  Serious: Yes (Hospitalization, Other)
  Sender: FDA-Public Use
  Company Number: PHHY2016DE186750

PATIENT
  Sex: Female

DRUGS (19)
  1. ROACTEMRA [Interacting]
     Active Substance: TOCILIZUMAB
     Dosage: 162 MG, QW
     Route: 058
     Dates: start: 20160907, end: 20180102
  2. ROACTEMRA [Interacting]
     Active Substance: TOCILIZUMAB
     Dosage: 162 MG
     Route: 065
     Dates: start: 20190318
  3. DEKRISTOL [Concomitant]
     Active Substance: CHOLECALCIFEROL
     Indication: PRODUCT USED FOR UNKNOWN INDICATION
     Dosage: 20000 IU, Q3W
     Route: 065
  4. METHOTREXATE. [Suspect]
     Active Substance: METHOTREXATE
     Indication: PRODUCT USED FOR UNKNOWN INDICATION
     Dosage: 10 MG, QW
     Route: 065
  5. CORTISONE [Interacting]
     Active Substance: CORTISONE
     Indication: PRODUCT USED FOR UNKNOWN INDICATION
     Dosage: 5 MG, QD
     Route: 065
  6. CORTISONE [Interacting]
     Active Substance: CORTISONE
     Dosage: 2.5 MG, QD
     Route: 065
  7. MARCUMAR [Interacting]
     Active Substance: PHENPROCOUMON
     Indication: VENOUS THROMBOSIS LIMB
     Dosage: UNK
     Route: 048
     Dates: start: 20160415
  8. ROACTEMRA [Interacting]
     Active Substance: TOCILIZUMAB
     Indication: RHEUMATOID ARTHRITIS
     Dosage: 162 MG, QW
     Route: 058
     Dates: start: 20160318, end: 201606
  9. FOLIC ACID. [Concomitant]
     Active Substance: FOLIC ACID
     Indication: PRODUCT USED FOR UNKNOWN INDICATION
     Dosage: UNK
     Route: 065
  10. TURMERIC [Concomitant]
     Active Substance: HERBALS\TURMERIC
     Indication: PRODUCT USED FOR UNKNOWN INDICATION
     Dosage: UNK
     Route: 065
  11. CORTISONE [Interacting]
     Active Substance: CORTISONE
     Dosage: 10 MG
     Route: 065
  12. CORTISONE [Interacting]
     Active Substance: CORTISONE
     Dosage: 3 MG, QD
     Route: 065
  13. ESCITALOPRAM [Concomitant]
     Active Substance: ESCITALOPRAM OXALATE
     Indication: PRODUCT USED FOR UNKNOWN INDICATION
     Dosage: 15 MG, QD
     Route: 065
  14. ROACTEMRA [Interacting]
     Active Substance: TOCILIZUMAB
     Dosage: 162 MG, QW
     Route: 058
     Dates: start: 20180109
  15. DEKRISTOL [Concomitant]
     Active Substance: CHOLECALCIFEROL
     Dosage: 20000 IU, QW
     Route: 065
  16. METHOTREXATE. [Interacting]
     Active Substance: METHOTREXATE
     Dosage: 7.5 MG, QW
     Route: 065
  17. XARELTO [Concomitant]
     Active Substance: RIVAROXABAN
     Indication: PRODUCT USED FOR UNKNOWN INDICATION
     Dosage: 20 MG
     Route: 065
  18. ROACTEMRA [Interacting]
     Active Substance: TOCILIZUMAB
     Dosage: 162 MG
     Route: 058
     Dates: start: 2020
  19. IRON [Concomitant]
     Active Substance: IRON
     Indication: PRODUCT USED FOR UNKNOWN INDICATION
     Dosage: UNK
     Route: 065

REACTIONS (22)
  - Upper limb fracture [Not Recovered/Not Resolved]
  - Liver function test increased [Recovering/Resolving]
  - Intestinal haemorrhage [Not Recovered/Not Resolved]
  - Myalgia [Recovering/Resolving]
  - Osteoporosis [Not Recovered/Not Resolved]
  - Drug interaction [Unknown]
  - Nasopharyngitis [Recovered/Resolved]
  - Spinal pain [Recovering/Resolving]
  - Arthralgia [Not Recovered/Not Resolved]
  - Haemoglobin decreased [Not Recovered/Not Resolved]
  - Rheumatoid factor increased [Recovered/Resolved]
  - Vomiting [Unknown]
  - Wrist fracture [Not Recovered/Not Resolved]
  - Weight increased [Unknown]
  - Nausea [Recovered/Resolved]
  - Fall [Unknown]
  - Inflammatory marker decreased [Not Recovered/Not Resolved]
  - Hypophagia [Unknown]
  - Venous thrombosis limb [Not Recovered/Not Resolved]
  - Movement disorder [Recovering/Resolving]
  - Fatigue [Recovering/Resolving]
  - Gamma-glutamyltransferase increased [Not Recovered/Not Resolved]

NARRATIVE: CASE EVENT DATE: 20160318
